FAERS Safety Report 5518889-1 (Version None)
Quarter: 2007Q4

REPORT INFORMATION
  Report Type: 
  Country: None (occurrence: None)
  Receive Date: 20071114
  Receipt Date: 20071105
  Transmission Date: 20080405
  Serious: Yes (Death, Other)
  Sender: FDA-Public Use
  Company Number: 163-21880-06060688

PATIENT
  Age: 70 Year
  Sex: Female
  Weight: 65.9 kg

DRUGS (17)
  1. REVLIMID [Suspect]
     Indication: MULTIPLE MYELOMA
     Dosage: 10 MG, DAILY, ORAL; 20 MG, 2 IN 1 D, ORAL; 10 MG, 1 IN 1 D, ORAL
     Route: 048
     Dates: start: 20060425, end: 20060717
  2. REVLIMID [Suspect]
     Indication: MULTIPLE MYELOMA
     Dosage: 10 MG, DAILY, ORAL; 20 MG, 2 IN 1 D, ORAL; 10 MG, 1 IN 1 D, ORAL
     Route: 048
     Dates: start: 20060101, end: 20061101
  3. REVLIMID [Suspect]
     Indication: MULTIPLE MYELOMA
     Dosage: 10 MG, DAILY, ORAL; 20 MG, 2 IN 1 D, ORAL; 10 MG, 1 IN 1 D, ORAL
     Route: 048
     Dates: start: 20060718, end: 20070731
  4. VELCADE [Suspect]
     Indication: MULTIPLE MYELOMA
     Dosage: 1 MG/M2, TWICE WEEKLY FOR 4 INFUSIONS
     Dates: start: 20061013, end: 20061101
  5. VELCADE [Suspect]
     Indication: MULTIPLE MYELOMA
     Dosage: 1 MG/M2, TWICE WEEKLY FOR 4 INFUSIONS
     Dates: start: 20060601
  6. DEXAMETHASONE TAB [Suspect]
     Indication: MULTIPLE MYELOMA
     Dosage: 20 MG, EACH MORNING FOR 4 DAYS ON, 4 DAYS; OFF; DAYS1-4, 9-12, 17-20, ORAL
     Route: 048
     Dates: start: 20061013, end: 20061101
  7. DEXAMETHASONE TAB [Suspect]
     Indication: MULTIPLE MYELOMA
     Dosage: 20 MG, EACH MORNING FOR 4 DAYS ON, 4 DAYS; OFF; DAYS1-4, 9-12, 17-20, ORAL
     Route: 048
     Dates: start: 20060901
  8. CYTOXAN [Suspect]
     Indication: DRUG USE FOR UNKNOWN INDICATION
     Dates: start: 20060602, end: 20061101
  9. ASPIRIN [Concomitant]
  10. POTASSIUM                 (POTASSIUM) [Concomitant]
  11. SALSALATE                   (SALSALATE) [Concomitant]
  12. MOBIC [Concomitant]
  13. ACETAMINOPHEN [Concomitant]
  14. MYCOLOG                           (MYCOLOG) (CREAM) [Concomitant]
  15. PREVIDENT         (SODIUM FLUORIDE) [Concomitant]
  16. PREVACID [Concomitant]
  17. CYMBALTA [Concomitant]

REACTIONS (19)
  - BACK PAIN [None]
  - BLOOD LACTATE DEHYDROGENASE INCREASED [None]
  - BURNING SENSATION [None]
  - DISEASE PROGRESSION [None]
  - DRY SKIN [None]
  - DYSPNOEA [None]
  - ECCHYMOSIS [None]
  - FATIGUE [None]
  - LIGHT CHAIN ANALYSIS ABNORMAL [None]
  - MULTIPLE MYELOMA [None]
  - MYELODYSPLASTIC SYNDROME [None]
  - NEUROPATHY [None]
  - ORAL CANDIDIASIS [None]
  - PAIN [None]
  - PANCYTOPENIA [None]
  - PHARYNGOLARYNGEAL PAIN [None]
  - PYREXIA [None]
  - SKIN EXFOLIATION [None]
  - TOOTHACHE [None]
